FAERS Safety Report 5133300-0 (Version None)
Quarter: 2006Q4

REPORT INFORMATION
  Report Type: 
  Country: None (occurrence: None)
  Receive Date: 20060831
  Receipt Date: 20060517
  Transmission Date: 20070319
  Serious: No
  Sender: FDA-Public Use
  Company Number: 2006-BP-03342BP

PATIENT
  Age: 88 Year
  Sex: Male

DRUGS (9)
  1. SPIRIVA [Suspect]
     Indication: CHRONIC OBSTRUCTIVE PULMONARY DISEASE
     Dosage: 18 MCG (18 MCG,1 IN 1 D),IH
     Dates: start: 20050101
  2. PULMICORT [Concomitant]
  3. XOPENEX [Concomitant]
  4. DIGITEC (DIGOXIN) [Concomitant]
  5. TAPAZOL (THIAMAZOLE) [Concomitant]
  6. PREDNISONE TAB [Concomitant]
  7. FEXOFENADINE HCL [Concomitant]
  8. OXYGEN (OXYGEN) [Concomitant]
  9. ALLEGRA [Concomitant]

REACTIONS (2)
  - DRY EYE [None]
  - POLLAKIURIA [None]
